FAERS Safety Report 6885177-0 (Version None)
Quarter: 2010Q3

REPORT INFORMATION
  Report Type: 
  Country: None (occurrence: None)
  Receive Date: 20100729
  Receipt Date: 20100729
  Transmission Date: 20110219
  Serious: Yes (Life-Threatening, Hospitalization)
  Sender: FDA-Public Use
  Company Number: None

PATIENT
  Sex: Female
  Weight: 56.6996 kg

DRUGS (1)
  1. GAVILYTE-C SOLUTION [Suspect]
     Indication: COLONOSCOPY
     Dosage: 8 OUNCES -TOTAL 3-4 LITERS- 10 MINUTES PO
     Route: 048
     Dates: start: 20100726, end: 20100726

REACTIONS (4)
  - APPARENT DEATH [None]
  - ELECTROLYTE IMBALANCE [None]
  - LOSS OF CONSCIOUSNESS [None]
  - VENTRICULAR FIBRILLATION [None]
